FAERS Safety Report 6888742-X (Version None)
Quarter: 2010Q3

REPORT INFORMATION
  Report Type: 
  Country: None (occurrence: None)
  Receive Date: 20100730
  Receipt Date: 20071117
  Transmission Date: 20110219
  Serious: No
  Sender: FDA-Public Use
  Company Number: US-PFIZER INC-2007075074

PATIENT
  Sex: Male
  Weight: 70.76 kg

DRUGS (8)
  1. LIPITOR [Suspect]
     Indication: BLOOD CHOLESTEROL INCREASED
  2. TOPROL-XL [Concomitant]
  3. BENICAR [Concomitant]
  4. LISINOPRIL [Concomitant]
  5. PROSCAR [Concomitant]
  6. CARDIOVASCULAR SYSTEM DRUGS [Concomitant]
     Indication: PROSTATOMEGALY
  7. ANDROGEL [Concomitant]
  8. DESMOPRESSIN ACETATE [Concomitant]

REACTIONS (11)
  - ABDOMINAL DISCOMFORT [None]
  - BLOOD CHOLESTEROL DECREASED [None]
  - DIARRHOEA [None]
  - DRUG HYPERSENSITIVITY [None]
  - DYSPEPSIA [None]
  - FLATULENCE [None]
  - GASTRIC DISORDER [None]
  - LACTOSE INTOLERANCE [None]
  - LIPIDS ABNORMAL [None]
  - NAUSEA [None]
  - VOMITING [None]
